FAERS Safety Report 7870666-2 (Version None)
Quarter: 2011Q3

REPORT INFORMATION
  Report Type: 
  Country: None (occurrence: None)
  Receive Date: 20110628
  Receipt Date: 20110622
  Transmission Date: 20111222
  Serious: Yes (Other)
  Sender: FDA-Public Use
  Company Number: 2011SP005054

PATIENT
  Age: 15 Year
  Sex: Female
  Weight: 73.9363 kg

DRUGS (1)
  1. NUVARING [Suspect]
     Indication: CONTRACEPTION
     Dosage: VAG
     Route: 067
     Dates: start: 20101010, end: 20110101

REACTIONS (2)
  - PREGNANCY ON CONTRACEPTIVE [None]
  - ABORTION SPONTANEOUS [None]
